FAERS Safety Report 17444257 (Version 1)
Quarter: 2020Q1

REPORT INFORMATION
  Report Type: Spontaneous
  Country: HU (occurrence: HU)
  Receive Date: 20200221
  Receipt Date: 20200221
  Transmission Date: 20200409
  Serious: Yes (Hospitalization, Other)
  Sender: FDA-Public Use
  Company Number: HU-ROCHE-2553338

PATIENT

DRUGS (1)
  1. RIVOTRIL [Suspect]
     Active Substance: CLONAZEPAM
     Indication: PRODUCT USED FOR UNKNOWN INDICATION
     Route: 065

REACTIONS (11)
  - Hormone level abnormal [Unknown]
  - Tension [Unknown]
  - Dependence [Unknown]
  - Panic disorder [Unknown]
  - Dizziness [Unknown]
  - Anger [Unknown]
  - Sleep disorder [Unknown]
  - Panic attack [Unknown]
  - Nausea [Unknown]
  - Poisoning [Unknown]
  - Headache [Unknown]
